FAERS Safety Report 6482285-3 (Version None)
Quarter: 2009Q4

REPORT INFORMATION
  Report Type: 
  Country: None (occurrence: None)
  Receive Date: 20091208
  Receipt Date: 20090418
  Transmission Date: 20100525
  Serious: No
  Sender: FDA-Public Use
  Company Number: US-AMGEN-KDL343513

PATIENT
  Sex: Female

DRUGS (1)
  1. ENBREL [Suspect]
     Indication: PSORIASIS
     Dates: start: 20090401

REACTIONS (4)
  - DRY SKIN [None]
  - FEELING HOT [None]
  - HYPOAESTHESIA [None]
  - SKIN CHAPPED [None]
